FAERS Safety Report 22146826 (Version 1)
Quarter: 2023Q1

REPORT INFORMATION
  Report Type: Spontaneous
  Country: GB (occurrence: GB)
  Receive Date: 20230328
  Receipt Date: 20230328
  Transmission Date: 20230417
  Serious: Yes (Other)
  Sender: FDA-Public Use
  Company Number: GB-AMGEN-GBRSP2023049979

PATIENT

DRUGS (2)
  1. ADALIMUMAB [Suspect]
     Active Substance: ADALIMUMAB
     Indication: Behcet^s syndrome
     Dosage: UNK
     Route: 065
  2. ETANERCEPT [Concomitant]
     Active Substance: ETANERCEPT
     Indication: Behcet^s syndrome
     Dosage: UNK
     Route: 065

REACTIONS (9)
  - Disability [Unknown]
  - Depression [Unknown]
  - Loss of personal independence in daily activities [Unknown]
  - Discomfort [Unknown]
  - Impaired work ability [Unknown]
  - Quality of life decreased [Unknown]
  - Pain [Unknown]
  - Anxiety [Unknown]
  - Off label use [Unknown]
